FAERS Safety Report 10697378 (Version 1)
Quarter: 2015Q1

REPORT INFORMATION
  Report Type: Spontaneous
  Country: US (occurrence: None)
  Receive Date: 20150107
  Receipt Date: 20150107
  Transmission Date: 20150721
  Serious: No
  Sender: FDA-Public Use
  Company Number: None

PATIENT
  Age: 75 Year
  Sex: Male

DRUGS (1)
  1. NEXAVAR [Suspect]
     Active Substance: SORAFENIB
     Indication: LIVER DISORDER
     Route: 048
     Dates: start: 20141016, end: 20141205

REACTIONS (2)
  - Asthenia [None]
  - Gingival bleeding [None]

NARRATIVE: CASE EVENT DATE: 20150105
